FAERS Safety Report 12963623 (Version 3)
Quarter: 2016Q4

REPORT INFORMATION
  Report Type: Spontaneous
  Country: IT (occurrence: IT)
  Receive Date: 20161122
  Receipt Date: 20161215
  Transmission Date: 20170207
  Serious: Yes (Hospitalization, Other)
  Sender: FDA-Public Use
  Company Number: IT-ROCHE-1856256

PATIENT
  Age: 45 Year
  Sex: Female

DRUGS (4)
  1. RIVOTRIL [Suspect]
     Active Substance: CLONAZEPAM
     Indication: DEPRESSION
  2. RIVOTRIL [Suspect]
     Active Substance: CLONAZEPAM
     Indication: ANXIETY
     Dosage: ^2 MG TABLETS^ 20 TABLETS
     Route: 048
     Dates: start: 20161112, end: 20161113
  3. TRITTICO [Suspect]
     Active Substance: TRAZODONE HYDROCHLORIDE
     Indication: DEPRESSION
     Dosage: BOTTLE CONTAINING 30 ML, ORAL DROPS, SOLUTION
     Route: 048
     Dates: start: 20161112, end: 20161113
  4. EN [Suspect]
     Active Substance: DELORAZEPAM
     Indication: ANXIETY
     Dosage: BOTTLE CONTAINING 20 ML, ORAL DROPS, SOLUTIONS
     Route: 048
     Dates: start: 20161112, end: 20161113

REACTIONS (6)
  - Overdose [Unknown]
  - Sopor [Recovering/Resolving]
  - Motor dysfunction [Recovered/Resolved]
  - Bradyphrenia [Recovered/Resolved]
  - Bradycardia [Recovering/Resolving]
  - Intentional self-injury [Unknown]

NARRATIVE: CASE EVENT DATE: 20161112
